FAERS Safety Report 6686464-1 (Version None)
Quarter: 2010Q2

REPORT INFORMATION
  Report Type: 
  Country: None (occurrence: None)
  Receive Date: 20100419
  Receipt Date: 20100412
  Transmission Date: 20101027
  Serious: Yes (Hospitalization, Disabling)
  Sender: FDA-Public Use
  Company Number: NO-ROCHE-561840

PATIENT
  Sex: Male

DRUGS (1)
  1. BEVACIZUMAB [Suspect]
     Dosage: ROUTE: INTRAVITREOUS.
     Route: 031
     Dates: start: 20070620, end: 20070620

REACTIONS (2)
  - HYPERTENSION [None]
  - RETINAL ARTERY OCCLUSION [None]
